FAERS Safety Report 12577793 (Version 3)
Quarter: 2016Q4

REPORT INFORMATION
  Report Type: Spontaneous
  Country: AU (occurrence: AU)
  Receive Date: 20160721
  Receipt Date: 20161016
  Transmission Date: 20170207
  Serious: Yes (Other)
  Sender: FDA-Public Use
  Company Number: AU-BAXTER-2016BAX037872

PATIENT
  Sex: Female

DRUGS (11)
  1. BAXTER 0.9% SODIUM CHLORIDE 9G_L INJECTION BP BAG AHB1324 [Suspect]
     Active Substance: SODIUM CHLORIDE
     Indication: MEDICATION DILUTION
     Route: 042
     Dates: start: 20160614, end: 20160614
  2. DOCETAXEL. [Suspect]
     Active Substance: DOCETAXEL
     Indication: BREAST CANCER
     Dosage: 80 MG VIAL
     Route: 042
     Dates: start: 20160614, end: 20160614
  3. LORAZEPAM. [Suspect]
     Active Substance: LORAZEPAM
     Dosage: STAT
     Route: 042
     Dates: start: 20160614, end: 20160614
  4. FLUOROURACIL. [Suspect]
     Active Substance: FLUOROURACIL
     Indication: BREAST CANCER
     Dosage: 3 COURSES
     Route: 065
     Dates: start: 20160403, end: 20160524
  5. PALONOSETRON [Suspect]
     Active Substance: PALONOSETRON
     Indication: PREMEDICATION
     Dosage: STAT DOSE
     Route: 042
     Dates: start: 20160614, end: 20160614
  6. DEXAMETHASONE. [Suspect]
     Active Substance: DEXAMETHASONE
     Indication: PREMEDICATION
     Dosage: STAT DOSE
     Route: 042
     Dates: start: 20160614, end: 20160614
  7. LORAZEPAM. [Suspect]
     Active Substance: LORAZEPAM
     Indication: PREMEDICATION
     Dosage: STAT DOSE
     Route: 048
     Dates: start: 20160614, end: 20160614
  8. ENDOXAN CYCLOPHOSPHAMIDE 2G (AS MONOHYDRATE) POWDER FOR INJECTION VIAL [Suspect]
     Active Substance: CYCLOPHOSPHAMIDE
     Indication: BREAST CANCER
     Dosage: 3 COURSES
     Route: 065
     Dates: start: 20160403, end: 20160524
  9. PALONOSETRON [Suspect]
     Active Substance: PALONOSETRON
     Dosage: STAT
     Route: 042
     Dates: start: 20160614, end: 20160614
  10. DEXAMETHASONE. [Suspect]
     Active Substance: DEXAMETHASONE
     Dosage: STAT
     Route: 042
     Dates: start: 20160614, end: 20160614
  11. EPIRUBICIN [Suspect]
     Active Substance: EPIRUBICIN
     Indication: BREAST CANCER
     Dosage: 3 COURSES
     Route: 065
     Dates: start: 20160403, end: 20160524

REACTIONS (5)
  - Lacrimation increased [Recovered/Resolved]
  - Sinusitis [Recovered/Resolved]
  - Palmar-plantar erythrodysaesthesia syndrome [Recovered/Resolved]
  - Anxiety [Recovered/Resolved]
  - Arthralgia [Recovered/Resolved]
